FAERS Safety Report 14026984 (Version 1)
Quarter: 2017Q3

REPORT INFORMATION
  Report Type: Spontaneous
  Country: BR (occurrence: BR)
  Receive Date: 20170929
  Receipt Date: 20170929
  Transmission Date: 20171128
  Serious: Yes (Other)
  Sender: FDA-Public Use
  Company Number: BR-ROCHE-1997237

PATIENT
  Age: 36 Year
  Sex: Male

DRUGS (2)
  1. RIVOTRIL [Suspect]
     Active Substance: CLONAZEPAM
     Indication: SLEEP DISORDER THERAPY
     Route: 065
     Dates: start: 2015
  2. CLONAZEPAM. [Suspect]
     Active Substance: CLONAZEPAM
     Indication: SLEEP DISORDER THERAPY
     Route: 065

REACTIONS (4)
  - Off label use [Unknown]
  - Intentional product use issue [Unknown]
  - Epilepsy [Unknown]
  - Agitation [Not Recovered/Not Resolved]
